FAERS Safety Report 21680738 (Version 1)
Quarter: 2022Q4

REPORT INFORMATION
  Report Type: Spontaneous
  Country: US (occurrence: US)
  Receive Date: 20221205
  Receipt Date: 20221205
  Transmission Date: 20230112
  Serious: No
  Sender: FDA-Public Use
  Company Number: US-JNJFOC-20221153657

PATIENT
  Age: 52 Year
  Sex: Male
  Weight: 74.8 kg

DRUGS (6)
  1. MACITENTAN [Suspect]
     Active Substance: MACITENTAN
     Indication: Product used for unknown indication
     Dosage: 10 MG, BID
     Route: 048
  2. TREPROSTINIL [Suspect]
     Active Substance: TREPROSTINIL
     Indication: Pulmonary arterial hypertension
     Route: 055
     Dates: start: 20220919
  3. TREPROSTINIL [Suspect]
     Active Substance: TREPROSTINIL
     Route: 055
     Dates: start: 2022
  4. MYCOPHENOLIC ACID [Suspect]
     Active Substance: MYCOPHENOLIC ACID
     Indication: Product used for unknown indication
     Route: 065
  5. ESBRIET [Concomitant]
     Active Substance: PIRFENIDONE
  6. SILDENAFIL CITRATE [Concomitant]
     Active Substance: SILDENAFIL CITRATE

REACTIONS (6)
  - Arthritis [Unknown]
  - Dizziness [Recovered/Resolved]
  - Peripheral swelling [Recovered/Resolved]
  - Chest discomfort [Not Recovered/Not Resolved]
  - Off label use [Unknown]
  - Illness [Unknown]

NARRATIVE: CASE EVENT DATE: 20220101
